FAERS Safety Report 9027316 (Version 2)
Quarter: 2013Q1

REPORT INFORMATION
  Report Type: Spontaneous
  Country: US (occurrence: US)
  Receive Date: 20130123
  Receipt Date: 20130329
  Transmission Date: 20140127
  Serious: No
  Sender: FDA-Public Use
  Company Number: US-009507513-1301USA010924

PATIENT
  Age: 85 Year
  Sex: Male

DRUGS (7)
  1. CLARITIN [Suspect]
     Indication: RHINORRHOEA
     Dosage: 10 MG, ONCE
     Route: 048
     Dates: start: 20130116
  2. CLARITIN [Suspect]
     Dosage: 10 MG, ONCE
     Route: 048
     Dates: start: 20130117
  3. LISINOPRIL [Concomitant]
     Indication: HYPERTENSION
     Dosage: UNK, UNKNOWN
  4. ALENDRONATE SODIUM [Concomitant]
     Indication: OSTEOPOROSIS
     Dosage: UNK, UNKNOWN
  5. CITRACAL + D [Concomitant]
     Indication: OSTEOPOROSIS
     Dosage: UNK, UNKNOWN
  6. CENTRUM SILVER [Concomitant]
     Indication: PRODUCT USED FOR UNKNOWN INDICATION
     Dosage: UNK, UNKNOWN
  7. VITAMIN D (UNSPECIFIED) [Concomitant]
     Indication: PRODUCT USED FOR UNKNOWN INDICATION
     Dosage: UNK, UNKNOWN

REACTIONS (2)
  - Overdose [Recovered/Resolved]
  - Inappropriate schedule of drug administration [Recovered/Resolved]
